FAERS Safety Report 12759496 (Version 2)
Quarter: 2016Q4

REPORT INFORMATION
  Report Type: Spontaneous
  Country: US (occurrence: US)
  Receive Date: 20160919
  Receipt Date: 20161103
  Transmission Date: 20170207
  Serious: Yes (Death)
  Sender: FDA-Public Use
  Company Number: US-TAIHO ONCOLOGY INC-EU-2016-02378

PATIENT
  Age: 40 Year
  Sex: Male

DRUGS (5)
  1. FENTORA [Concomitant]
     Active Substance: FENTANYL CITRATE
     Dosage: NI
  2. DILAUDID [Concomitant]
     Active Substance: HYDROMORPHONE HYDROCHLORIDE
     Dosage: NI
  3. LYRICA [Concomitant]
     Active Substance: PREGABALIN
     Dosage: NI
  4. ZOFRAN [Concomitant]
     Active Substance: ONDANSETRON HYDROCHLORIDE
     Dosage: NI
  5. LONSURF [Suspect]
     Active Substance: TIPIRACIL HYDROCHLORIDE\TRIFLURIDINE
     Indication: COLON CANCER
     Route: 048
     Dates: start: 20160816

REACTIONS (2)
  - Disease progression [Fatal]
  - Intentional underdose [Unknown]

NARRATIVE: CASE EVENT DATE: 20160816
